FAERS Safety Report 22921868 (Version 5)
Quarter: 2023Q4

REPORT INFORMATION
  Report Type: Spontaneous
  Country: CZ (occurrence: CZ)
  Receive Date: 20230908
  Receipt Date: 20231027
  Transmission Date: 20240110
  Serious: Yes (Hospitalization, Other)
  Sender: FDA-Public Use
  Company Number: CZ-OPELLA-2023OHG006956

PATIENT
  Age: 17 Year
  Sex: Female

DRUGS (80)
  1. METAMIZOLE [Suspect]
     Active Substance: METAMIZOLE
     Indication: Suicide attempt
     Dosage: 10 TABLETS
     Route: 048
  2. METAMIZOLE [Suspect]
     Active Substance: METAMIZOLE
     Dosage: 10 TABLETS
     Route: 048
  3. METAMIZOLE [Suspect]
     Active Substance: METAMIZOLE
     Dosage: 10 TABLETS
     Route: 048
  4. METAMIZOLE [Suspect]
     Active Substance: METAMIZOLE
     Dosage: 10 TABLETS
     Route: 048
  5. DROTAVERINE HYDROCHLORIDE [Suspect]
     Active Substance: DROTAVERINE HYDROCHLORIDE
     Indication: Suicide attempt
     Dosage: 20 TABLETS
     Route: 048
  6. DROTAVERINE HYDROCHLORIDE [Suspect]
     Active Substance: DROTAVERINE HYDROCHLORIDE
     Dosage: 20 TABLETS
     Route: 048
  7. DROTAVERINE HYDROCHLORIDE [Suspect]
     Active Substance: DROTAVERINE HYDROCHLORIDE
     Dosage: 20 TABLETS
     Route: 048
  8. DROTAVERINE HYDROCHLORIDE [Suspect]
     Active Substance: DROTAVERINE HYDROCHLORIDE
     Dosage: 20 TABLETS
     Route: 048
  9. DROTAVERINE HYDROCHLORIDE [Suspect]
     Active Substance: DROTAVERINE HYDROCHLORIDE
     Dosage: 20 TABLETS
     Route: 048
  10. DROTAVERINE HYDROCHLORIDE [Suspect]
     Active Substance: DROTAVERINE HYDROCHLORIDE
     Dosage: 20 TABLETS
     Route: 048
  11. DROTAVERINE HYDROCHLORIDE [Suspect]
     Active Substance: DROTAVERINE HYDROCHLORIDE
     Dosage: 20 TABLETS
     Route: 048
  12. DROTAVERINE HYDROCHLORIDE [Suspect]
     Active Substance: DROTAVERINE HYDROCHLORIDE
     Dosage: 20 TABLETS
     Route: 048
  13. IBUPROFEN [Suspect]
     Active Substance: IBUPROFEN
     Indication: Suicide attempt
     Dosage: 100 TABLETS
     Route: 048
  14. IBUPROFEN [Suspect]
     Active Substance: IBUPROFEN
     Dosage: 100 TABLETS
     Route: 048
  15. IBUPROFEN [Suspect]
     Active Substance: IBUPROFEN
     Dosage: 100 TABLETS
     Route: 048
  16. IBUPROFEN [Suspect]
     Active Substance: IBUPROFEN
     Dosage: 100 TABLETS
     Route: 048
  17. IBUPROFEN [Suspect]
     Active Substance: IBUPROFEN
     Dosage: 100 TABLETS
     Route: 048
  18. IBUPROFEN [Suspect]
     Active Substance: IBUPROFEN
     Dosage: 100 TABLETS
     Route: 048
  19. IBUPROFEN [Suspect]
     Active Substance: IBUPROFEN
     Dosage: 100 TABLETS
     Route: 048
  20. IBUPROFEN [Suspect]
     Active Substance: IBUPROFEN
     Dosage: 100 TABLETS
     Route: 048
  21. METAMIZOLE [Suspect]
     Active Substance: METAMIZOLE
     Indication: Suicide attempt
     Dosage: 10 TABLETS
     Route: 048
  22. METAMIZOLE [Suspect]
     Active Substance: METAMIZOLE
     Dosage: 10 TABLETS
     Route: 048
  23. METAMIZOLE [Suspect]
     Active Substance: METAMIZOLE
     Dosage: 10 TABLETS
     Route: 048
  24. METAMIZOLE [Suspect]
     Active Substance: METAMIZOLE
     Dosage: 10 TABLETS
     Route: 048
  25. AMBROXOL HYDROCHLORIDE [Suspect]
     Active Substance: AMBROXOL HYDROCHLORIDE
     Indication: Suicide attempt
     Dosage: 10 TABLETS
     Route: 048
  26. AMBROXOL HYDROCHLORIDE [Suspect]
     Active Substance: AMBROXOL HYDROCHLORIDE
     Dosage: 10 TABLETS
     Route: 048
  27. AMBROXOL HYDROCHLORIDE [Suspect]
     Active Substance: AMBROXOL HYDROCHLORIDE
     Dosage: 10 TABLETS
     Route: 048
  28. AMBROXOL HYDROCHLORIDE [Suspect]
     Active Substance: AMBROXOL HYDROCHLORIDE
     Dosage: 10 TABLETS
     Route: 048
  29. AMBROXOL HYDROCHLORIDE [Suspect]
     Active Substance: AMBROXOL HYDROCHLORIDE
     Dosage: 10 TABLETS
     Route: 048
  30. AMBROXOL HYDROCHLORIDE [Suspect]
     Active Substance: AMBROXOL HYDROCHLORIDE
     Dosage: 10 TABLETS
     Route: 048
  31. AMBROXOL HYDROCHLORIDE [Suspect]
     Active Substance: AMBROXOL HYDROCHLORIDE
     Dosage: 10 TABLETS
     Route: 048
  32. AMBROXOL HYDROCHLORIDE [Suspect]
     Active Substance: AMBROXOL HYDROCHLORIDE
     Dosage: 10 TABLETS
     Route: 048
  33. LOPERAMIDE [Suspect]
     Active Substance: LOPERAMIDE
     Indication: Suicide attempt
     Dosage: 8 TABLETS
     Route: 048
  34. LOPERAMIDE [Suspect]
     Active Substance: LOPERAMIDE
     Dosage: 8 TABLETS
     Route: 048
  35. LOPERAMIDE [Suspect]
     Active Substance: LOPERAMIDE
     Dosage: 8 TABLETS
     Route: 048
  36. LOPERAMIDE [Suspect]
     Active Substance: LOPERAMIDE
     Dosage: 8 TABLETS
     Route: 048
  37. LOPERAMIDE [Suspect]
     Active Substance: LOPERAMIDE
     Dosage: 8 TABLETS
     Route: 048
  38. LOPERAMIDE [Suspect]
     Active Substance: LOPERAMIDE
     Dosage: 8 TABLETS
     Route: 048
  39. LOPERAMIDE [Suspect]
     Active Substance: LOPERAMIDE
     Dosage: 8 TABLETS
     Route: 048
  40. LOPERAMIDE [Suspect]
     Active Substance: LOPERAMIDE
     Dosage: 8 TABLETS
     Route: 048
  41. PROGESTERONE [Suspect]
     Active Substance: PROGESTERONE
     Indication: Suicide attempt
     Dosage: 15 TABLETS
     Route: 048
  42. PROGESTERONE [Suspect]
     Active Substance: PROGESTERONE
     Dosage: 15 TABLETS
     Route: 048
  43. PROGESTERONE [Suspect]
     Active Substance: PROGESTERONE
     Dosage: 15 TABLETS
     Route: 048
  44. PROGESTERONE [Suspect]
     Active Substance: PROGESTERONE
     Dosage: 15 TABLETS
     Route: 048
  45. PROGESTERONE [Suspect]
     Active Substance: PROGESTERONE
     Dosage: 15 TABLETS
     Route: 048
  46. PROGESTERONE [Suspect]
     Active Substance: PROGESTERONE
     Dosage: 15 TABLETS
     Route: 048
  47. PROGESTERONE [Suspect]
     Active Substance: PROGESTERONE
     Dosage: 15 TABLETS
     Route: 048
  48. PROGESTERONE [Suspect]
     Active Substance: PROGESTERONE
     Dosage: 15 TABLETS
     Route: 048
  49. PROPIVERINE [Suspect]
     Active Substance: PROPIVERINE
     Indication: Suicide attempt
     Dosage: 14 TABLETS
     Route: 048
  50. PROPIVERINE [Suspect]
     Active Substance: PROPIVERINE
     Dosage: 14 TABLETS
     Route: 048
  51. PROPIVERINE [Suspect]
     Active Substance: PROPIVERINE
     Dosage: 14 TABLETS
     Route: 048
  52. PROPIVERINE [Suspect]
     Active Substance: PROPIVERINE
     Dosage: 14 TABLETS
     Route: 048
  53. PROPIVERINE [Suspect]
     Active Substance: PROPIVERINE
     Dosage: 14 TABLETS
     Route: 048
  54. PROPIVERINE [Suspect]
     Active Substance: PROPIVERINE
     Dosage: 14 TABLETS
     Route: 048
  55. PROPIVERINE [Suspect]
     Active Substance: PROPIVERINE
     Dosage: 14 TABLETS
     Route: 048
  56. PROPIVERINE [Suspect]
     Active Substance: PROPIVERINE
     Dosage: 14 TABLETS
     Route: 048
  57. NORFLOXACIN [Suspect]
     Active Substance: NORFLOXACIN
     Indication: Suicide attempt
     Dosage: 20 TABLETS
     Route: 048
  58. NORFLOXACIN [Suspect]
     Active Substance: NORFLOXACIN
     Dosage: 20 TABLETS
     Route: 048
  59. NORFLOXACIN [Suspect]
     Active Substance: NORFLOXACIN
     Dosage: 20 TABLETS
     Route: 048
  60. NORFLOXACIN [Suspect]
     Active Substance: NORFLOXACIN
     Dosage: 20 TABLETS
     Route: 048
  61. NORFLOXACIN [Suspect]
     Active Substance: NORFLOXACIN
     Dosage: 20 TABLETS
     Route: 048
  62. NORFLOXACIN [Suspect]
     Active Substance: NORFLOXACIN
     Dosage: 20 TABLETS
     Route: 048
  63. NORFLOXACIN [Suspect]
     Active Substance: NORFLOXACIN
  64. NORFLOXACIN [Suspect]
     Active Substance: NORFLOXACIN
  65. METHYLPHENIDATE HYDROCHLORIDE [Suspect]
     Active Substance: METHYLPHENIDATE HYDROCHLORIDE
     Indication: Suicide attempt
     Dosage: 30 TABLETS
     Route: 048
  66. METHYLPHENIDATE HYDROCHLORIDE [Suspect]
     Active Substance: METHYLPHENIDATE HYDROCHLORIDE
     Dosage: 30 TABLETS
     Route: 048
  67. METHYLPHENIDATE HYDROCHLORIDE [Suspect]
     Active Substance: METHYLPHENIDATE HYDROCHLORIDE
     Dosage: 30 TABLETS
     Route: 048
  68. METHYLPHENIDATE HYDROCHLORIDE [Suspect]
     Active Substance: METHYLPHENIDATE HYDROCHLORIDE
     Dosage: 30 TABLETS
     Route: 048
  69. METOPROLOL [Suspect]
     Active Substance: METOPROLOL
     Indication: Suicide attempt
     Dosage: 100 TABLETS
     Route: 048
  70. METOPROLOL [Suspect]
     Active Substance: METOPROLOL
     Dosage: 100 TABLETS
     Route: 048
  71. METOPROLOL [Suspect]
     Active Substance: METOPROLOL
     Dosage: 100 TABLETS
     Route: 048
  72. METOPROLOL [Suspect]
     Active Substance: METOPROLOL
     Dosage: 100 TABLETS
     Route: 048
  73. METOPROLOL [Suspect]
     Active Substance: METOPROLOL
     Dosage: 100 TABLETS
     Route: 048
  74. METOPROLOL [Suspect]
     Active Substance: METOPROLOL
     Dosage: 100 TABLETS
     Route: 048
  75. METOPROLOL [Suspect]
     Active Substance: METOPROLOL
     Dosage: 100 TABLETS
     Route: 048
  76. METOPROLOL [Suspect]
     Active Substance: METOPROLOL
     Dosage: 100 TABLETS
     Route: 048
  77. METHYLPHENIDATE [Suspect]
     Active Substance: METHYLPHENIDATE
     Indication: Suicide attempt
     Dosage: 30 TABLETS
     Route: 048
  78. METHYLPHENIDATE [Suspect]
     Active Substance: METHYLPHENIDATE
     Dosage: 30 TABLETS
     Route: 048
  79. METHYLPHENIDATE [Suspect]
     Active Substance: METHYLPHENIDATE
     Dosage: 30 TABLETS
     Route: 048
  80. METHYLPHENIDATE [Suspect]
     Active Substance: METHYLPHENIDATE
     Dosage: 30 TABLETS
     Route: 048

REACTIONS (9)
  - Confusional state [Recovering/Resolving]
  - Bradycardia [Recovering/Resolving]
  - Acidosis [Recovering/Resolving]
  - Dyslalia [Recovering/Resolving]
  - Toxicity to various agents [Recovering/Resolving]
  - Mydriasis [Recovering/Resolving]
  - Metabolic acidosis [Recovering/Resolving]
  - Intentional overdose [Recovered/Resolved]
  - Suicide attempt [Recovered/Resolved]
